FAERS Safety Report 5307434-1 (Version None)
Quarter: 2007Q2

REPORT INFORMATION
  Report Type: 
  Country: None (occurrence: None)
  Receive Date: 20070425
  Receipt Date: 20070413
  Transmission Date: 20071010
  Serious: Yes (Other)
  Sender: FDA-Public Use
  Company Number: JP-SHR-JP-2007-009341

PATIENT
  Age: 74 Year
  Sex: Male

DRUGS (2)
  1. PROSCOPE 300 [Suspect]
     Indication: ANGIOGRAM CEREBRAL
     Dosage: 5 ML, 1 DOSE
     Route: 042
     Dates: start: 20070110, end: 20070110
  2. PENTAGIN [Concomitant]
     Dosage: UNK, UNK
     Route: 042
     Dates: start: 20070110, end: 20070110

REACTIONS (7)
  - ANAPHYLACTIC SHOCK [None]
  - BLOOD PRESSURE DECREASED [None]
  - COLD SWEAT [None]
  - NAUSEA [None]
  - RESTLESSNESS [None]
  - SHOCK [None]
  - VOMITING [None]
